FAERS Safety Report 16255327 (Version 1)
Quarter: 2019Q2

REPORT INFORMATION
  Report Type: Spontaneous
  Country: FR (occurrence: FR)
  Receive Date: 20190430
  Receipt Date: 20190430
  Transmission Date: 20190711
  Serious: Yes (Hospitalization, Other)
  Sender: FDA-Public Use
  Company Number: FR-AUROBINDO-AUR-APL-2019-022334

PATIENT

DRUGS (8)
  1. SIMPONI [Suspect]
     Active Substance: GOLIMUMAB
     Indication: ENTEROCOLITIS HAEMORRHAGIC
     Dosage: 100 MILLIGRAM (200 MG IV ONCE)
     Route: 042
  2. ENALAPRIL MALEATE. [Concomitant]
     Active Substance: ENALAPRIL MALEATE
     Indication: HYPERTENSION
     Dosage: UNK
     Route: 048
  3. ROWASA [Suspect]
     Active Substance: MESALAMINE
     Indication: COLITIS
     Dosage: 4000 MILLIGRAM, DAILY
     Route: 048
     Dates: start: 20170530, end: 20170624
  4. SIMPONI [Suspect]
     Active Substance: GOLIMUMAB
     Dosage: 200 MILLIGRAM (200 MG IV ONCE)
     Route: 042
     Dates: start: 20170612
  5. ATENOLOL. [Concomitant]
     Active Substance: ATENOLOL
     Indication: HYPERTENSION
     Dosage: UNK
     Route: 048
  6. LOPERAMIDE [Suspect]
     Active Substance: LOPERAMIDE
     Indication: DIARRHOEA
     Dosage: 1 DOSAGE FORM ON DEMAD
     Route: 048
  7. NEOMERCAZOLE [Concomitant]
     Active Substance: CARBIMAZOLE
     Indication: HYPERTHYROIDISM
     Dosage: 20 MILLIGRAM, DAILY
     Route: 048
     Dates: start: 20170324
  8. NEOMERCAZOLE [Concomitant]
     Active Substance: CARBIMAZOLE
     Dosage: 10 MILLIGRAM, DAILY
     Route: 048
     Dates: start: 20170510

REACTIONS (1)
  - Hepatitis cholestatic [Recovering/Resolving]

NARRATIVE: CASE EVENT DATE: 20170624
